FAERS Safety Report 15236452 (Version 1)
Quarter: 2018Q3

REPORT INFORMATION
  Report Type: Spontaneous
  Country: RU (occurrence: RU)
  Receive Date: 20180803
  Receipt Date: 20180803
  Transmission Date: 20181010
  Serious: Yes (Hospitalization)
  Sender: FDA-Public Use
  Company Number: RU-GLAXOSMITHKLINE-RU2018GSK137575

PATIENT
  Age: 57 Year
  Sex: Male

DRUGS (2)
  1. OMACOR [Suspect]
     Active Substance: OMEGA-3-ACID ETHYL ESTERS
     Indication: PRODUCT USED FOR UNKNOWN INDICATION
     Dosage: 1000 MG, 1D
     Route: 048
  2. WARFARIN [Interacting]
     Active Substance: WARFARIN
     Indication: PRODUCT USED FOR UNKNOWN INDICATION
     Dosage: 1000 MG, UNK

REACTIONS (4)
  - Haematuria [Unknown]
  - Contusion [Unknown]
  - Drug interaction [Unknown]
  - Gingival bleeding [Unknown]

NARRATIVE: CASE EVENT DATE: 20130326
